FAERS Safety Report 6025102-8 (Version None)
Quarter: 2008Q4

REPORT INFORMATION
  Report Type: 
  Country: None (occurrence: None)
  Receive Date: 20081231
  Receipt Date: 20081222
  Transmission Date: 20090506
  Serious: Yes (Hospitalization)
  Sender: FDA-Public Use
  Company Number: US-AMGEN-QUU325348

PATIENT
  Sex: Female

DRUGS (1)
  1. ENBREL [Suspect]
     Indication: RHEUMATOID ARTHRITIS
     Route: 058
     Dates: start: 19981101

REACTIONS (10)
  - BREAST CANCER [None]
  - BREAST RECONSTRUCTION [None]
  - HEADACHE [None]
  - HIP ARTHROPLASTY [None]
  - INJECTION SITE PAIN [None]
  - KNEE ARTHROPLASTY [None]
  - MASS [None]
  - PAIN [None]
  - SHOULDER OPERATION [None]
  - STAPHYLOCOCCAL INFECTION [None]
